FAERS Safety Report 15921137 (Version 2)
Quarter: 2019Q1

REPORT INFORMATION
  Report Type: Spontaneous
  Country: US (occurrence: US)
  Receive Date: 20190205
  Receipt Date: 20190301
  Transmission Date: 20190417
  Serious: No
  Sender: FDA-Public Use
  Company Number: US-009507513-1901USA011574

PATIENT
  Age: 27 Year
  Sex: Female
  Weight: 49.43 kg

DRUGS (1)
  1. NEXPLANON [Suspect]
     Active Substance: ETONOGESTREL
     Dosage: 1 IMPLANT
     Route: 059
     Dates: start: 20170724, end: 20190118

REACTIONS (7)
  - Implant site infection [Unknown]
  - Implant site pain [Unknown]
  - Blister rupture [Unknown]
  - Device expulsion [Recovered/Resolved]
  - Implant site pustules [Unknown]
  - Implant site erythema [Unknown]
  - Implant site vesicles [Unknown]

NARRATIVE: CASE EVENT DATE: 20180817
